FAERS Safety Report 17451871 (Version 1)
Quarter: 2020Q1

REPORT INFORMATION
  Report Type: Spontaneous
  Country: US (occurrence: US)
  Receive Date: 20200224
  Receipt Date: 20200224
  Transmission Date: 20200409
  Serious: Yes (Other)
  Sender: FDA-Public Use
  Company Number: None

PATIENT
  Age: 63 Year
  Sex: Female
  Weight: 67 kg

DRUGS (11)
  1. FAMOTIDINE. [Concomitant]
     Active Substance: FAMOTIDINE
     Dates: start: 20191120, end: 20191120
  2. FOSAPREPITANT 150MG [Concomitant]
     Dates: start: 20191120
  3. LIDOCAINE VISCOUS 2% [Concomitant]
  4. LYNPARZA [Concomitant]
     Active Substance: OLAPARIB
  5. DOCETAXEL 126MG [Concomitant]
     Dates: start: 20200224
  6. CARBOPLATIN 402MG [Concomitant]
     Dates: start: 20191120
  7. PALONOSETRON 0.25MG [Concomitant]
     Dates: start: 20191120
  8. NEULASTA [Concomitant]
     Active Substance: PEGFILGRASTIM
     Dates: start: 20191120
  9. BENADRYL 50MG IV [Concomitant]
     Dates: start: 20191120, end: 20191120
  10. PACLITAXEL 100MG/16.7ML VIAL [Suspect]
     Active Substance: PACLITAXEL
     Indication: FALLOPIAN TUBE CANCER
     Dosage: ?          OTHER FREQUENCY:325MG IV Q21DAYS;?
     Route: 041
     Dates: start: 20200219
  11. DEXAMETHASONE. [Concomitant]
     Active Substance: DEXAMETHASONE
     Dates: start: 20191120, end: 20191120

REACTIONS (1)
  - Adverse drug reaction [None]

NARRATIVE: CASE EVENT DATE: 20200224
